FAERS Safety Report 5194848-6 (Version None)
Quarter: 2006Q4

REPORT INFORMATION
  Report Type: 
  Country: None (occurrence: None)
  Receive Date: 20061227
  Receipt Date: 20060127
  Transmission Date: 20070319
  Serious: Yes (Hospitalization)
  Sender: FDA-Public Use
  Company Number: GXKR2006US00678

PATIENT
  Age: 22 Year
  Sex: Male

DRUGS (4)
  1. DEXTROMETHORPHAN (NGX) (DEXTROMETHORPHAN) UNKNOWN [Suspect]
     Indication: DRUG USE FOR UNKNOWN INDICATION
     Dosage: OVER 900 MG, ORAL
     Route: 048
  2. FLUOXETINE [Suspect]
     Indication: BIPOLAR I DISORDER
     Dosage: 20 MG
  3. LITHIUM CARBONATE [Suspect]
     Indication: BIPOLAR I DISORDER
     Dosage: 600 MG, BID
  4. CLONAZEPAM [Concomitant]

REACTIONS (4)
  - DRUG INTERACTION POTENTIATION [None]
  - DRUG TOXICITY [None]
  - INTENTIONAL DRUG MISUSE [None]
  - SEROTONIN SYNDROME [None]
